FAERS Safety Report 22094087 (Version 3)
Quarter: 2023Q2

REPORT INFORMATION
  Report Type: Spontaneous
  Country: JP (occurrence: JP)
  Receive Date: 20230314
  Receipt Date: 20230517
  Transmission Date: 20230721
  Serious: Yes (Death, Other)
  Sender: FDA-Public Use
  Company Number: JP-GILEAD-2023-0619813

PATIENT
  Age: 1 Year
  Sex: Female

DRUGS (1)
  1. VEKLURY [Suspect]
     Active Substance: REMDESIVIR
     Indication: COVID-19
     Dosage: UNK
     Route: 065
     Dates: start: 20220817, end: 20220822

REACTIONS (3)
  - Encephalopathy [Fatal]
  - Cytokine storm [Unknown]
  - Hepatic enzyme increased [Unknown]
